FAERS Safety Report 16140902 (Version 2)
Quarter: 2019Q2

REPORT INFORMATION
  Report Type: Spontaneous
  Country: RU (occurrence: RU)
  Receive Date: 20190401
  Receipt Date: 20190418
  Transmission Date: 20190711
  Serious: Yes (Hospitalization, Other)
  Sender: FDA-Public Use
  Company Number: RU-ABBVIE-19S-251-2704796-00

PATIENT
  Age: 44 Year
  Sex: Female
  Weight: 74 kg

DRUGS (13)
  1. ATROPINE. [Concomitant]
     Active Substance: ATROPINE
     Indication: PREMEDICATION
     Route: 042
     Dates: start: 20190307, end: 20190307
  2. SEVORANE [Suspect]
     Active Substance: SEVOFLURANE
     Indication: GENERAL ANAESTHESIA
     Dosage: 2.5%
     Route: 007
     Dates: start: 20190307, end: 20190307
  3. RELANIUM [Concomitant]
     Indication: PREMEDICATION
     Route: 042
     Dates: start: 20190307, end: 20190307
  4. DEXAMETHASONE. [Concomitant]
     Active Substance: DEXAMETHASONE
     Indication: PRODUCT USED FOR UNKNOWN INDICATION
     Route: 042
     Dates: start: 20190307, end: 20190307
  5. PROPOFOL. [Concomitant]
     Active Substance: PROPOFOL
     Indication: INDUCTION OF ANAESTHESIA
     Route: 042
     Dates: start: 20190307, end: 20190307
  6. FENTANYL. [Concomitant]
     Active Substance: FENTANYL
     Indication: GENERAL ANAESTHESIA
     Route: 042
     Dates: start: 20190307, end: 20190307
  7. RINGERS SOLUTION [Concomitant]
     Active Substance: CALCIUM CHLORIDE\POTASSIUM CHLORIDE\SODIUM CHLORIDE
     Indication: INFUSION
     Route: 042
     Dates: start: 20190307, end: 20190307
  8. LATRAN [Concomitant]
     Indication: PROPHYLAXIS OF NAUSEA AND VOMITING
     Route: 042
     Dates: start: 20190307, end: 20190307
  9. LYSTHENON [Concomitant]
     Active Substance: SUCCINYLCHOLINE CHLORIDE
     Indication: GENERAL ANAESTHESIA
     Route: 042
     Dates: start: 20190307, end: 20190307
  10. NORMAL SALINE [Concomitant]
     Active Substance: SODIUM CHLORIDE
     Indication: INFUSION
     Route: 042
     Dates: start: 20190307, end: 20190307
  11. CEFTRIAXONE. [Concomitant]
     Active Substance: CEFTRIAXONE
     Indication: INFECTION PROPHYLAXIS
     Route: 042
     Dates: start: 20190307, end: 20190307
  12. SEVORANE [Suspect]
     Active Substance: SEVOFLURANE
     Route: 007
     Dates: start: 201903, end: 201903
  13. TRACRIUM [Concomitant]
     Active Substance: ATRACURIUM BESYLATE
     Indication: GENERAL ANAESTHESIA
     Route: 042
     Dates: start: 20190307, end: 20190307

REACTIONS (5)
  - Procedural vomiting [Recovered/Resolved]
  - Procedural nausea [Recovered/Resolved]
  - Procedural dizziness [Recovered/Resolved]
  - Feeling drunk [Unknown]
  - Product quality issue [Unknown]

NARRATIVE: CASE EVENT DATE: 20190307
